FAERS Safety Report 24525177 (Version 1)
Quarter: 2024Q4

REPORT INFORMATION
  Report Type: Report from Study
  Country: DE (occurrence: DE)
  Receive Date: 20241019
  Receipt Date: 20241019
  Transmission Date: 20250115
  Serious: Yes (Other)
  Sender: ACCORD
  Company Number: None

PATIENT
  Age: 42 Year
  Sex: Female

DRUGS (19)
  1. EZETIMIBE [Suspect]
     Active Substance: EZETIMIBE
     Indication: Product used for unknown indication
  2. DOXAZOSIN [Suspect]
     Active Substance: DOXAZOSIN\DOXAZOSIN MESYLATE
     Indication: Product used for unknown indication
  3. OCRELIZUMAB [Suspect]
     Active Substance: OCRELIZUMAB
     Indication: Neuromyelitis optica spectrum disorder
     Dosage: FIRST INITIAL DOSE
     Dates: start: 20210204
  4. METAMIZOLE [Concomitant]
     Active Substance: METAMIZOLE
  5. RAMIPRIL [Concomitant]
     Active Substance: RAMIPRIL
     Dosage: 1-0-1
  6. AMINOPHYLLINE\QUININE SULFATE [Concomitant]
     Active Substance: AMINOPHYLLINE\QUININE SULFATE
     Dosage: 1-0-0
  7. TILIDINE [Concomitant]
     Active Substance: TILIDINE
  8. METFORMIN [Concomitant]
     Active Substance: METFORMIN HYDROCHLORIDE
  9. AMLODIPINE [Concomitant]
     Active Substance: AMLODIPINE BESYLATE
     Dosage: 5 MG, 2X/DAY, 1-0-1
  10. ROSUVASTATIN [Concomitant]
     Active Substance: ROSUVASTATIN
     Dosage: 0-0-1
  11. ASPIRIN [Concomitant]
     Active Substance: ASPIRIN
     Dosage: 1-0-0
  12. METOPROLOL [Concomitant]
     Active Substance: METOPROLOL
     Dosage: 1-0-1
  13. NITRANGIN [Concomitant]
  14. EMPAGLIFLOZIN [Concomitant]
     Active Substance: EMPAGLIFLOZIN
     Dosage: 1-0-0
  15. DESOGESTREL [Concomitant]
     Active Substance: DESOGESTREL
     Dosage: 0-0-1
  16. OCRELIZUMAB [Suspect]
     Active Substance: OCRELIZUMAB
     Indication: Neuromyelitis optica spectrum disorder
     Dosage: SECOND INITIAL DOSE
     Dates: start: 20210217
  17. AMLODIPINE [Concomitant]
     Active Substance: AMLODIPINE BESYLATE
     Dosage: 5 MG, 2X/DAY, 1-0-1
  18. METOPROLOL [Concomitant]
     Active Substance: METOPROLOL
     Dosage: 47.5 MG, 2X/DAY, 1-0-1
  19. OCRELIZUMAB [Suspect]
     Active Substance: OCRELIZUMAB
     Indication: Neuromyelitis optica spectrum disorder
     Dosage: FIRST INITIAL DOSE  (DOSAGE : 600, 208 DAYS)
     Dates: start: 20210204

REACTIONS (26)
  - Fatigue [Recovered/Resolved]
  - Toothache [Recovered/Resolved]
  - Nausea [Recovered/Resolved]
  - Hypotension [Recovered/Resolved]
  - Eye pain [Recovering/Resolving]
  - Hypertension [Recovered/Resolved]
  - Feeling cold [Recovered/Resolved]
  - Noninfective gingivitis [Unknown]
  - Muscle spasms [Recovered/Resolved]
  - COVID-19 [Recovered/Resolved]
  - Arthritis [Recovered/Resolved]
  - Pain in extremity [Recovered/Resolved]
  - Vulvovaginal mycotic infection [Recovered/Resolved]
  - Diarrhoea [Recovered/Resolved]
  - Vomiting [Recovered/Resolved]
  - Visual impairment [Not Recovered/Not Resolved]
  - Muscular weakness [Recovering/Resolving]
  - Rash [Recovered/Resolved]
  - Malaise [Recovered/Resolved]
  - Red blood cell count increased [Not Recovered/Not Resolved]
  - Nasopharyngitis [Recovered/Resolved]
  - Motor dysfunction [Not Recovered/Not Resolved]
  - Tremor [Not Recovered/Not Resolved]
  - Inflammatory marker increased [Recovered/Resolved]
  - Injection site erythema [Recovered/Resolved]
  - Bipolar disorder [Recovered/Resolved]

NARRATIVE: CASE EVENT DATE: 20210204
